FAERS Safety Report 7618794-0 (Version None)
Quarter: 2011Q3

REPORT INFORMATION
  Report Type: 
  Country: None (occurrence: None)
  Receive Date: 20110718
  Receipt Date: 20110707
  Transmission Date: 20111222
  Serious: Yes (Hospitalization)
  Sender: FDA-Public Use
  Company Number: CA-JNJFOC-20110304470

PATIENT
  Sex: Male
  Weight: 87 kg

DRUGS (3)
  1. REMICADE [Suspect]
     Route: 042
     Dates: start: 20101112
  2. REMICADE [Suspect]
     Indication: RHEUMATOID ARTHRITIS
     Route: 042
     Dates: start: 20091101
  3. REMICADE [Suspect]
     Dosage: 6-8 WEEKS
     Route: 042
     Dates: start: 20070101

REACTIONS (1)
  - HIP ARTHROPLASTY [None]
